FAERS Safety Report 9074448 (Version 1)
Quarter: 2013Q1

REPORT INFORMATION
  Report Type: Report from Study
  Country: US (occurrence: US)
  Receive Date: 20130129
  Receipt Date: 20130129
  Transmission Date: 20140127
  Serious: No
  Sender: FDA-Public Use
  Company Number: US-ABBOTT-12P-163-0925326-00

PATIENT
  Age: 62 Year
  Sex: Female
  Weight: 81.72 kg

DRUGS (15)
  1. HUMIRA 40 MG/0.8 ML PEN [Suspect]
     Indication: COLITIS ULCERATIVE
     Dosage: LOADING DOSE
     Dates: start: 20120319, end: 20120319
  2. HUMIRA 40 MG/0.8 ML PEN [Suspect]
     Dosage: ONCE
  3. HUMIRA 40 MG/0.8 ML PEN [Suspect]
     Dates: start: 20120416
  4. ASACOL [Concomitant]
     Indication: CROHN^S DISEASE
  5. PREDNISONE [Concomitant]
     Indication: CROHN^S DISEASE
  6. IMMURAN [Concomitant]
     Indication: CROHN^S DISEASE
  7. TRAZODONE [Concomitant]
     Indication: DEPRESSION
  8. SEROQUEL [Concomitant]
     Indication: DEPRESSION
  9. SEROQUEL [Concomitant]
     Indication: DEPRESSION
  10. DEPAKOTE [Concomitant]
     Indication: CONVULSION
  11. DEPAKOTE [Concomitant]
     Indication: DEPRESSION
  12. OMEPRAZOLE [Concomitant]
     Indication: GASTROOESOPHAGEAL REFLUX DISEASE
  13. CYMBALTA [Concomitant]
     Indication: DEPRESSION
  14. LACTAID [Concomitant]
     Indication: LACTOSE INTOLERANCE
  15. VICODIN [Concomitant]
     Indication: PAIN

REACTIONS (8)
  - Dizziness [Recovering/Resolving]
  - Dizziness [Recovering/Resolving]
  - Influenza like illness [Not Recovered/Not Resolved]
  - Headache [Not Recovered/Not Resolved]
  - Abdominal pain upper [Recovering/Resolving]
  - Injection site pain [Not Recovered/Not Resolved]
  - Feeling abnormal [Unknown]
  - Off label use [Unknown]
